FAERS Safety Report 10088944 (Version 1)
Quarter: 2014Q2

REPORT INFORMATION
  Report Type: Report from Study
  Country: US (occurrence: US)
  Receive Date: 20140421
  Receipt Date: 20140421
  Transmission Date: 20141212
  Serious: Yes (Hospitalization, Other)
  Sender: FDA-Public Use
  Company Number: PHEH2014US007665

PATIENT
  Sex: Female

DRUGS (3)
  1. EXFORGE [Suspect]
     Dosage: 1 DF, (160 MG VALS AND 5 MG HYDR)
     Route: 048
  2. EXFORGE [Suspect]
     Dosage: 1 DF, (320 MG VALS AND 10 MG AMLO)
     Route: 048
  3. ENABLEX [Concomitant]
     Dosage: 15 MG, UNK

REACTIONS (1)
  - Heart valve incompetence [Unknown]
